FAERS Safety Report 8922570 (Version 2)
Quarter: 2013Q1

REPORT INFORMATION
  Report Type: Report from Study
  Country: JP (occurrence: JP)
  Receive Date: 20121123
  Receipt Date: 20130211
  Transmission Date: 20140127
  Serious: Yes (Hospitalization, Other)
  Sender: FDA-Public Use
  Company Number: PHHY2010JP88004

PATIENT
  Age: 51 Year
  Sex: Female
  Weight: 48 kg

DRUGS (9)
  1. AFINITOR [Suspect]
     Indication: METASTATIC RENAL CELL CARCINOMA
     Dosage: 10 MG, QD
     Route: 048
     Dates: start: 20100609, end: 20100705
  2. TAKEPRON [Concomitant]
     Indication: METASTATIC RENAL CELL CARCINOMA
     Route: 048
     Dates: start: 20100609
  3. RINDERON [Concomitant]
     Indication: METASTATIC RENAL CELL CARCINOMA
     Dates: start: 20100609
  4. AMLODIN [Concomitant]
     Indication: METASTATIC RENAL CELL CARCINOMA
     Dosage: 2.5 MG, UNK
     Route: 048
     Dates: start: 20100609
  5. THYRADIN [Concomitant]
     Indication: METASTATIC RENAL CELL CARCINOMA
     Route: 048
     Dates: start: 20100609
  6. ALLELOCK [Concomitant]
     Indication: METASTATIC RENAL CELL CARCINOMA
     Route: 048
     Dates: start: 20100609
  7. KIPRES [Concomitant]
     Indication: METASTATIC RENAL CELL CARCINOMA
     Route: 048
     Dates: start: 20100609
  8. DEPAKENE-R [Concomitant]
     Indication: METASTATIC RENAL CELL CARCINOMA
     Route: 048
     Dates: start: 20100609
  9. ROCEPHIN [Concomitant]
     Route: 042
     Dates: start: 20100705, end: 20100707

REACTIONS (5)
  - Pyelonephritis [Recovered/Resolved]
  - Blood creatinine increased [Unknown]
  - Blood urea increased [Unknown]
  - Lymphangiosis carcinomatosa [Recovered/Resolved]
  - Blood uric acid increased [Unknown]
